FAERS Safety Report 7211142-X (Version None)
Quarter: 2011Q1

REPORT INFORMATION
  Report Type: 
  Country: None (occurrence: None)
  Receive Date: 20110105
  Receipt Date: 20101223
  Transmission Date: 20110831
  Serious: Yes (Hospitalization)
  Sender: FDA-Public Use
  Company Number: PHHY2010LT88496

PATIENT
  Age: 39 Year
  Sex: Male

DRUGS (2)
  1. AMOXICILLIN AND CLAVULANATE POTASSIUM [Suspect]
     Indication: RESPIRATORY TRACT INFECTION
     Dosage: 500 MG/125 MG FILM COATED TABLETS, 3 TABS/PER DAY
     Route: 048
     Dates: start: 20101213, end: 20101216
  2. PROPPAN [Concomitant]

REACTIONS (6)
  - HYPOAESTHESIA [None]
  - DIZZINESS [None]
  - COORDINATION ABNORMAL [None]
  - GAIT DISTURBANCE [None]
  - EYE PAIN [None]
  - HEADACHE [None]
